FAERS Safety Report 9008538 (Version 1)
Quarter: 2013Q1

REPORT INFORMATION
  Report Type: Report from Study
  Country: BE (occurrence: BE)
  Receive Date: 20130111
  Receipt Date: 20130111
  Transmission Date: 20140127
  Serious: Yes (Hospitalization, Other)
  Sender: FDA-Public Use
  Company Number: BE-ELI_LILLY_AND_COMPANY-BE201211000489

PATIENT
  Age: 44 Year
  Sex: Female
  Weight: 60 kg

DRUGS (8)
  1. GEMCITABINE HYDROCHLORIDE [Suspect]
     Indication: BREAST CANCER
     Dosage: 1644 MG, QS
     Route: 042
     Dates: start: 20121016, end: 20121016
  2. HERCEPTIN [Suspect]
     Indication: BREAST CANCER
     Dosage: 360 MG, 1 DOSE EVERY 3 WEEKS
     Route: 042
     Dates: start: 20121016
  3. DAFALGAN [Concomitant]
     Indication: PAIN
     Dosage: UNK
     Dates: start: 20000101
  4. LITICAN [Concomitant]
     Indication: NAUSEA
     Dosage: UNK
     Dates: start: 201210
  5. CLEXANE [Concomitant]
     Dosage: UNK
     Dates: start: 20121019, end: 20121023
  6. CLEXANE [Concomitant]
     Dosage: UNK
     Dates: start: 20121029
  7. CONTRAMAL [Concomitant]
     Indication: PAIN
     Dosage: UNK
     Dates: start: 20121028, end: 20121103
  8. ACTOSOLV [Concomitant]
     Indication: THROMBOSIS
     Dosage: UNK
     Dates: start: 20121016, end: 20121016

REACTIONS (2)
  - Pyrexia [Recovered/Resolved]
  - Pleural effusion [Recovered/Resolved]
